FAERS Safety Report 15183048 (Version 1)
Quarter: 2018Q3

REPORT INFORMATION
  Report Type: Spontaneous
  Country: US (occurrence: US)
  Receive Date: 20180625
  Receipt Date: 20180625
  Transmission Date: 20181010
  Serious: No
  Sender: FDA-Public Use
  Company Number: None

PATIENT
  Age: 8 Year
  Sex: Male
  Weight: 42.64 kg

DRUGS (3)
  1. ARIPIPRAZOLE. [Suspect]
     Active Substance: ARIPIPRAZOLE
     Indication: DISRUPTIVE MOOD DYSREGULATION DISORDER
     Route: 048
     Dates: start: 20180501, end: 20180616
  2. ARIPIPRAZOLE. [Suspect]
     Active Substance: ARIPIPRAZOLE
     Indication: OPPOSITIONAL DEFIANT DISORDER
     Route: 048
     Dates: start: 20180501, end: 20180616
  3. ARIPIRAZOLE [Suspect]
     Active Substance: ARIPIPRAZOLE

REACTIONS (4)
  - Dysphagia [None]
  - Aggression [None]
  - Dyspnoea [None]
  - Rash [None]
